FAERS Safety Report 8371703-1 (Version None)
Quarter: 2012Q2

REPORT INFORMATION
  Report Type: 
  Country: None (occurrence: None)
  Receive Date: 20120518
  Receipt Date: 20120514
  Transmission Date: 20120825
  Serious: No
  Sender: FDA-Public Use
  Company Number: US-PFIZER INC-2012117198

PATIENT
  Sex: Female

DRUGS (2)
  1. LISINOPRIL AND HYDROCHLOROTHIAZIDE [Interacting]
     Indication: HYPERTENSION
     Dosage: UNK
  2. IBUPROFEN (ADVIL) [Suspect]
     Dosage: UNK
     Dates: start: 20120101

REACTIONS (2)
  - DRUG INTERACTION [None]
  - POLLAKIURIA [None]
